FAERS Safety Report 7043497-3 (Version None)
Quarter: 2010Q4

REPORT INFORMATION
  Report Type: 
  Country: None (occurrence: None)
  Receive Date: 20101008
  Receipt Date: 20100927
  Transmission Date: 20110411
  Serious: Yes (Life-Threatening, Hospitalization)
  Sender: FDA-Public Use
  Company Number: OMPQ-GE-1009S-0883

PATIENT
  Age: 64 Year
  Sex: Female
  Weight: 80 kg

DRUGS (2)
  1. ACCUPAQUE (IOHEXOL) [Suspect]
     Indication: PAIN
     Dosage: 100 ML, SINGLE DOSE, I.V.
     Route: 042
     Dates: start: 20100901, end: 20100901
  2. ACCUPAQUE (IOHEXOL) [Suspect]
     Indication: URETERIC OBSTRUCTION
     Dosage: 100 ML, SINGLE DOSE, I.V.
     Route: 042
     Dates: start: 20100901, end: 20100901

REACTIONS (3)
  - BLOOD PRESSURE DECREASED [None]
  - CHILLS [None]
  - SEPSIS [None]
